FAERS Safety Report 11266025 (Version 1)
Quarter: 2015Q3

REPORT INFORMATION
  Report Type: Spontaneous
  Country: US (occurrence: US)
  Receive Date: 20150713
  Receipt Date: 20150713
  Transmission Date: 20151125
  Serious: No
  Sender: FDA-Public Use
  Company Number: US-DSJP-DSU-2014-129168

PATIENT
  Age: 80 Year
  Sex: Female

DRUGS (2)
  1. THREE OTHER MEDICATIONS [Concomitant]
     Active Substance: UNSPECIFIED INGREDIENT
     Indication: PRODUCT USED FOR UNKNOWN INDICATION
     Dosage: UNK
  2. BENICAR HCT [Suspect]
     Active Substance: HYDROCHLOROTHIAZIDE\OLMESARTAN MEDOXOMIL
     Indication: HYPERTENSION
     Dosage: 40/12.5, QD
     Route: 048
     Dates: start: 2004

REACTIONS (2)
  - Sleep apnoea syndrome [Not Recovered/Not Resolved]
  - Blood pressure increased [Unknown]
